FAERS Safety Report 6019420-7 (Version None)
Quarter: 2008Q4

REPORT INFORMATION
  Report Type: 
  Country: None (occurrence: None)
  Receive Date: 20081224
  Receipt Date: 20081210
  Transmission Date: 20090506
  Serious: Yes (Other)
  Sender: FDA-Public Use
  Company Number: US-PFIZER INC-2008095839

PATIENT
  Sex: Female
  Weight: 78.005 kg

DRUGS (32)
  1. CHANTIX [Suspect]
     Dosage: 1 MG, 2X/DAY
     Dates: start: 20080801
  2. SEROQUEL [Concomitant]
     Indication: BIPOLAR I DISORDER
     Dosage: 200 MG, 1X/DAY
     Route: 048
  3. TOPROL-XL [Concomitant]
     Indication: CARDIAC DISORDER
     Dosage: 50 MG, 1X/DAY
     Route: 048
  4. FENTANYL-100 [Concomitant]
     Dosage: 175 UNK, UNK
     Route: 062
  5. HYDROMORPHONE [Concomitant]
     Dosage: 4 MG, AS NEEDED
  6. ZOFRAN [Concomitant]
  7. PROMETHAZINE [Concomitant]
     Dosage: 25 MG, AS NEEDED
     Route: 048
  8. METOCLOPRAMIDE [Concomitant]
     Dosage: 10 MG, UNK
     Route: 048
  9. ACIPHEX [Concomitant]
     Dosage: 20 MBQ, 2X/DAY
     Route: 048
  10. VALIUM [Concomitant]
     Dosage: 5 MG, AS NEEDED
  11. DUONEB [Concomitant]
     Route: 055
  12. CLINDAMYCIN HYDROCHLORIDE [Concomitant]
     Route: 048
  13. PANCREASE MT [Concomitant]
  14. ORTHO-NOVUM [Concomitant]
     Route: 048
  15. HYDROMORPHONE HYDROCHLORIDE [Concomitant]
     Indication: PAIN
  16. GABAPENTIN [Concomitant]
     Route: 048
  17. ACIPHEX [Concomitant]
     Dosage: 20 MG, 2X/DAY
  18. SALBUTAMOL [Concomitant]
  19. FAMOTIDINE [Concomitant]
     Dosage: 40 MG, 1X/DAY
     Route: 048
  20. FLECTOR [Concomitant]
     Route: 061
  21. MELOXICAM [Concomitant]
     Dosage: 15 MG, 1X/DAY
     Route: 048
  22. MECLIZINE [Concomitant]
     Route: 048
  23. MUPIROCIN [Concomitant]
     Dosage: 2 %, 4X/DAY
     Route: 061
  24. TUMS [Concomitant]
     Dosage: 1000 MG, AS NEEDED
     Route: 048
  25. SPIRIVA [Concomitant]
     Dosage: 18 UNK, UNK
  26. DIFLUCAN [Concomitant]
     Route: 048
  27. LACTULOSE [Concomitant]
     Route: 048
  28. AMITIZA [Concomitant]
     Dosage: UNK MEQ, UNK
     Route: 048
  29. TEMAZEPAM [Concomitant]
     Dosage: 30 MG, UNK
     Route: 048
  30. LIDODERM [Concomitant]
     Dosage: 5 %, UNK
  31. CLARITIN [Concomitant]
     Dosage: 10 MG, AS NEEDED
  32. ELIDEL [Concomitant]
     Dosage: 1 %, AS NEEDED
     Route: 061

REACTIONS (3)
  - BIPOLAR DISORDER [None]
  - MEDICATION ERROR [None]
  - WEIGHT INCREASED [None]
